FAERS Safety Report 8791305 (Version 2)
Quarter: 2012Q4

REPORT INFORMATION
  Report Type: Spontaneous
  Country: US (occurrence: None)
  Receive Date: 20120911
  Receipt Date: 20120926
  Transmission Date: 20130627
  Serious: Yes (Other)
  Sender: FDA-Public Use
  Company Number: AMAG201203094

PATIENT
  Age: 35 Year
  Sex: Female
  Weight: 75 kg

DRUGS (4)
  1. FERAHEME [Suspect]
     Indication: IRON DEFICIENCY ANAEMIA
     Dosage: 510 mg, single, intravenous
     Route: 042
     Dates: start: 20120830, end: 20120830
  2. VITAMIN B COMPLEX (NICOTINAMIDE, PYRIDOXINE HYDROCHLORIDE, RIBOFLAVIN, THIAMINE MONONITRATE) [Concomitant]
  3. VITAMIN B12 (CYANOCOBALAMIN) [Concomitant]
  4. VITAMIN D (COLECALCIFEROL) [Concomitant]

REACTIONS (6)
  - Dyspnoea [None]
  - Anaphylactic reaction [None]
  - Swollen tongue [None]
  - Hypoaesthesia [None]
  - Paraesthesia [None]
  - Pruritus [None]
